FAERS Safety Report 8509175 (Version 3)
Quarter: 2013Q4

REPORT INFORMATION
  Report Type: Spontaneous
  Country: US (occurrence: US)
  Receive Date: 20120412
  Receipt Date: 20131126
  Transmission Date: 20140711
  Serious: No
  Sender: FDA-Public Use
  Company Number: US-ASTRAZENECA-2011SE57728

PATIENT
  Age: 55 Year
  Sex: Female

DRUGS (12)
  1. NEXIUM [Suspect]
     Route: 048
  2. OMEPRAZOLE [Suspect]
     Route: 048
     Dates: start: 201102, end: 201104
  3. RANITIDINE/RANITIDINE HCL [Concomitant]
  4. DEXILANT [Concomitant]
  5. BABY ASPIRIN [Concomitant]
  6. ESTRADIOL [Concomitant]
  7. NAPROXEN SODIUM [Concomitant]
  8. PANTOPRAZOLE [Concomitant]
  9. AMLODIPINE [Concomitant]
  10. ZOLPIDEM AMBIEN [Concomitant]
  11. BUPROPRION WELLBUTRIN [Concomitant]
  12. VALTREX [Concomitant]

REACTIONS (11)
  - Pain [Unknown]
  - Gastritis [Unknown]
  - Aphagia [Unknown]
  - Dyspepsia [Unknown]
  - Chest pain [Unknown]
  - Arthritis [Unknown]
  - Hypertension [Unknown]
  - Depression [Unknown]
  - Malaise [Unknown]
  - Drug ineffective [Unknown]
  - Drug dose omission [Unknown]
